FAERS Safety Report 7831793-9 (Version None)
Quarter: 2011Q4

REPORT INFORMATION
  Report Type: 
  Country: None (occurrence: None)
  Receive Date: 20111021
  Receipt Date: 20111013
  Transmission Date: 20120403
  Serious: Yes (Hospitalization)
  Sender: FDA-Public Use
  Company Number: IT-ABBOTT-11P-083-0699900-02

PATIENT
  Sex: Female
  Weight: 47 kg

DRUGS (7)
  1. HUMIRA [Suspect]
     Dosage: WEEK 2
     Route: 058
  2. COMMERCIAL HUMIRA [Concomitant]
     Indication: PRODUCT USED FOR UNKNOWN INDICATION
     Dates: start: 20071107
  3. HUMIRA [Suspect]
     Indication: CROHN'S DISEASE
     Dosage: BASELINE
     Route: 058
     Dates: start: 20090410, end: 20090410
  4. HUMIRA [Suspect]
     Route: 058
     Dates: end: 20100820
  5. PREDNISONE [Concomitant]
     Indication: CROHN'S DISEASE
     Dosage: WITH PROGRESSIVE TAPERING
     Dates: start: 20090928
  6. PREDNISONE [Concomitant]
     Dosage: WITH PROGRESSIVE TAPERING
     Dates: start: 20091115
  7. PANTOPRAZOLE SODIUM [Concomitant]
     Indication: STEROID THERAPY
     Dates: start: 20091105

REACTIONS (5)
  - NAUSEA [None]
  - DIARRHOEA [None]
  - ABDOMINAL PAIN [None]
  - VOMITING [None]
  - CROHN'S DISEASE [None]
